FAERS Safety Report 20315029 (Version 1)
Quarter: 2022Q1

REPORT INFORMATION
  Report Type: Spontaneous
  Country: GT (occurrence: GT)
  Receive Date: 20220110
  Receipt Date: 20220110
  Transmission Date: 20220424
  Serious: Yes (Other)
  Sender: FDA-Public Use
  Company Number: GT-PFIZER INC-202101881930

PATIENT
  Age: 93 Year
  Sex: Male

DRUGS (1)
  1. LIPITOR [Suspect]
     Active Substance: ATORVASTATIN CALCIUM
     Dosage: 1 DF, DAILY (SINCE 5-6 YEARS)
     Route: 048

REACTIONS (3)
  - Deafness [Unknown]
  - Condition aggravated [Unknown]
  - Cardiac pacemaker replacement [Unknown]
